FAERS Safety Report 24257069 (Version 8)
Quarter: 2025Q1

REPORT INFORMATION
  Report Type: Spontaneous
  Country: DE (occurrence: DE)
  Receive Date: 20240828
  Receipt Date: 20250206
  Transmission Date: 20250409
  Serious: Yes (Other)
  Sender: UCB
  Company Number: None

PATIENT
  Age: 67 Year
  Sex: Male

DRUGS (16)
  1. LEVETIRACETAM [Suspect]
     Active Substance: LEVETIRACETAM
     Indication: Seizure prophylaxis
     Dosage: 500 MILLIGRAM, 2X/DAY (BID)
  2. LEVETIRACETAM [Suspect]
     Active Substance: LEVETIRACETAM
     Indication: Off label use
  3. FENTANYL [Suspect]
     Active Substance: FENTANYL
     Indication: Pain
  4. IBUPROFEN [Suspect]
     Active Substance: IBUPROFEN
     Indication: Back pain
  5. IBUPROFEN [Suspect]
     Active Substance: IBUPROFEN
     Indication: Pain
  6. FENTANYL [Suspect]
     Active Substance: FENTANYL
     Indication: Back pain
  7. FENTANYL [Suspect]
     Active Substance: FENTANYL
     Indication: Pain
  8. TRAMADOL [Suspect]
     Active Substance: TRAMADOL
     Indication: Back pain
  9. TRAMADOL [Suspect]
     Active Substance: TRAMADOL
     Indication: Pain
  10. TESTOSTERONE [Concomitant]
     Active Substance: TESTOSTERONE
     Indication: Product used for unknown indication
     Route: 062
  11. LEVOTHYROXINE [Concomitant]
     Active Substance: LEVOTHYROXINE
     Indication: Product used for unknown indication
     Dosage: NASAL APPLICATOR
     Route: 045
  12. HYDROCORTISONE [Concomitant]
     Active Substance: HYDROCORTISONE
     Indication: Product used for unknown indication
     Dosage: NASAL APPLICATOR
     Route: 045
  13. MINIRIN [Concomitant]
     Active Substance: DESMOPRESSIN ACETATE
     Indication: Product used for unknown indication
     Dosage: 1 DOSAGE FORM, ONCE DAILY
     Route: 045
  14. MINIRIN [Concomitant]
     Active Substance: DESMOPRESSIN ACETATE
     Route: 045
  15. MINIRIN [Concomitant]
     Active Substance: DESMOPRESSIN ACETATE
     Route: 045
  16. TESTOSTERONE [Concomitant]
     Active Substance: TESTOSTERONE
     Route: 062

REACTIONS (4)
  - Epilepsy [Recovered/Resolved]
  - Simple partial seizures [Recovered/Resolved]
  - Hyponatraemia [Recovered/Resolved]
  - Off label use [Unknown]
